FAERS Safety Report 5381435-X (Version None)
Quarter: 2007Q2

REPORT INFORMATION
  Report Type: 
  Country: None (occurrence: None)
  Receive Date: 20070629
  Receipt Date: 20070307
  Transmission Date: 20071010
  Serious: Yes (Hospitalization, Disabling, Other)
  Sender: FDA-Public Use
  Company Number: US_0503113795

PATIENT
  Age: 49 Year
  Weight: 127.3 kg

DRUGS (5)
  1. HUMULIN L [Suspect]
     Indication: DIABETES MELLITUS
  2. HUMULIN R [Suspect]
     Indication: DIABETES MELLITUS
     Dates: start: 19970101, end: 19990101
  3. HUMULIN N [Suspect]
     Indication: DIABETES MELLITUS
     Dates: start: 19970101, end: 19990101
  4. HUMALOG [Suspect]
     Indication: DIABETES MELLITUS
     Dosage: 300 U, OTHER,
     Dates: start: 19990101
  5. LANTUS [Concomitant]

REACTIONS (9)
  - BLOOD GLUCOSE DECREASED [None]
  - BLOOD GLUCOSE INCREASED [None]
  - CATARACT [None]
  - COMA [None]
  - LOSS OF CONSCIOUSNESS [None]
  - MULTIPLE INJURIES [None]
  - ROAD TRAFFIC ACCIDENT [None]
  - SHOCK HYPOGLYCAEMIC [None]
  - VISUAL ACUITY REDUCED [None]
